FAERS Safety Report 9800048 (Version 2)
Quarter: 2014Q1

REPORT INFORMATION
  Report Type: Spontaneous
  Country: US (occurrence: US)
  Receive Date: 20140106
  Receipt Date: 20140106
  Transmission Date: 20141002
  Serious: No
  Sender: FDA-Public Use
  Company Number: US-GILEAD-2010-0032088

PATIENT
  Age: 75 Year
  Sex: Female

DRUGS (2)
  1. LETAIRIS [Suspect]
     Indication: PULMONARY ARTERIAL HYPERTENSION
     Route: 048
     Dates: start: 20100804, end: 20100908
  2. ALEVE [Concomitant]

REACTIONS (3)
  - Cellulitis [Unknown]
  - Renal impairment [Not Recovered/Not Resolved]
  - Local swelling [Not Recovered/Not Resolved]
